FAERS Safety Report 11451234 (Version 1)
Quarter: 2015Q3

REPORT INFORMATION
  Report Type: Spontaneous
  Country: US (occurrence: US)
  Receive Date: 20150903
  Receipt Date: 20150903
  Transmission Date: 20151125
  Serious: Yes (Death, Congenital Anomaly, Other)
  Sender: FDA-Public Use
  Company Number: US-TEVA-589249USA

PATIENT
  Age: 6 Month
  Sex: Female

DRUGS (2)
  1. ONDANSETRON [Suspect]
     Active Substance: ONDANSETRON
     Route: 064
  2. ZOFRAN [Suspect]
     Active Substance: ONDANSETRON HYDROCHLORIDE
     Route: 064

REACTIONS (13)
  - Pallor [Unknown]
  - Asthenia [Unknown]
  - Respiratory arrest [Unknown]
  - Vomiting [Unknown]
  - Cardio-respiratory arrest [Fatal]
  - Heart disease congenital [Fatal]
  - Caudal regression syndrome [Unknown]
  - Truncus arteriosus persistent [Unknown]
  - Pericardial effusion [Recovered/Resolved]
  - Retching [Unknown]
  - Ventricular septal defect [Unknown]
  - Kidney malformation [Unknown]
  - Lethargy [Unknown]

NARRATIVE: CASE EVENT DATE: 20140805
